FAERS Safety Report 24448537 (Version 1)
Quarter: 2024Q4

REPORT INFORMATION
  Report Type: Report from Study
  Country: US (occurrence: US)
  Receive Date: 20241017
  Receipt Date: 20241017
  Transmission Date: 20250114
  Serious: Yes (Other)
  Sender: ALEXION PHARMACEUTICALS
  Company Number: US-AstraZeneca-CH-00724056A

PATIENT

DRUGS (1)
  1. FARXIGA [Suspect]
     Active Substance: DAPAGLIFLOZIN PROPANEDIOL

REACTIONS (6)
  - Hypoacusis [Unknown]
  - Cardiac failure [Unknown]
  - Blood pressure decreased [Unknown]
  - Tooth loss [Unknown]
  - Weight decreased [Unknown]
  - Cardiac disorder [Unknown]
